FAERS Safety Report 4459315-3 (Version None)
Quarter: 2004Q3

REPORT INFORMATION
  Report Type: 
  Country: None (occurrence: None)
  Receive Date: 20040923
  Receipt Date: 20040923
  Transmission Date: 20050211
  Serious: Yes (Death, Hospitalization)
  Sender: FDA-Public Use
  Company Number: None

PATIENT
  Sex: Male
  Weight: 63.5036 kg

DRUGS (4)
  1. TOPOTECAN  4 MG VIALS  GLAXOSMITHKLINE [Suspect]
     Indication: SMALL CELL LUNG CANCER STAGE UNSPECIFIED
     Dosage: 4MG/M2 WEEKLY INTRAVENOUS
     Route: 042
     Dates: start: 20040817, end: 20040914
  2. ANZEMET [Concomitant]
  3. ARANESP [Concomitant]
  4. PROCRIT [Concomitant]

REACTIONS (1)
  - DYSPNOEA [None]
